FAERS Safety Report 24398865 (Version 2)
Quarter: 2024Q4

REPORT INFORMATION
  Report Type: Spontaneous
  Country: GB (occurrence: GB)
  Receive Date: 20241004
  Receipt Date: 20241112
  Transmission Date: 20250115
  Serious: Yes (Hospitalization, Other)
  Sender: BAYER HEALTHCARE PHARMACEUTICALS INC.
  Company Number: GB-BAYER-2024A140754

PATIENT
  Age: 60 Year
  Sex: Male

DRUGS (2)
  1. XOFIGO [Suspect]
     Active Substance: RADIUM RA-223 DICHLORIDE
     Indication: Prostate cancer metastatic
     Dosage: 4.416 MBQ
     Route: 042
     Dates: start: 20240830, end: 20240830
  2. XOFIGO [Suspect]
     Active Substance: RADIUM RA-223 DICHLORIDE
     Indication: Metastases to bone

REACTIONS (4)
  - Fall [None]
  - Prostatic specific antigen increased [None]
  - Mobility decreased [None]
  - Back pain [None]

NARRATIVE: CASE EVENT DATE: 20240101
